FAERS Safety Report 6696548-X (Version None)
Quarter: 2010Q2

REPORT INFORMATION
  Report Type: 
  Country: None (occurrence: None)
  Receive Date: 20100422
  Receipt Date: 20100409
  Transmission Date: 20101027
  Serious: Yes (Other)
  Sender: FDA-Public Use
  Company Number: 2010-0837

PATIENT
  Age: 62 Year
  Sex: Male

DRUGS (1)
  1. DYSPORT [Suspect]
     Indication: MUSCLE SPASTICITY
     Dosage: 500 UNITS (500 UNITS, SINGLE)
     Route: 030
     Dates: start: 20091023, end: 20091023

REACTIONS (3)
  - DIPLOPIA [None]
  - EYE MOVEMENT DISORDER [None]
  - IMPAIRED DRIVING ABILITY [None]
